FAERS Safety Report 4951854-1 (Version None)
Quarter: 2006Q1

REPORT INFORMATION
  Report Type: 
  Country: None (occurrence: None)
  Receive Date: 20060323
  Receipt Date: 20051007
  Transmission Date: 20060701
  Serious: Yes (Death, Hospitalization)
  Sender: FDA-Public Use
  Company Number: US-MERCK-0510USA05691

PATIENT
  Sex: Female
  Weight: 71 kg

DRUGS (4)
  1. VIOXX [Suspect]
     Indication: ARTHRITIS
     Route: 048
     Dates: start: 20000101, end: 20040201
  2. VIOXX [Suspect]
     Route: 048
     Dates: start: 20000101, end: 20040201
  3. VIOXX [Suspect]
     Indication: ARTHRALGIA
     Route: 048
     Dates: start: 20000101, end: 20040201
  4. VIOXX [Suspect]
     Route: 048
     Dates: start: 20000101, end: 20040201

REACTIONS (10)
  - ARTHROPATHY [None]
  - BACK PAIN [None]
  - CARDIAC DISORDER [None]
  - CARDIOVASCULAR DISORDER [None]
  - CHEST PAIN [None]
  - FALL [None]
  - GAIT DISTURBANCE [None]
  - GENERAL SYMPTOM [None]
  - HYPERTENSION [None]
  - RESPIRATORY DISTRESS [None]
